FAERS Safety Report 5172263-9 (Version None)
Quarter: 2006Q4

REPORT INFORMATION
  Report Type: 
  Country: None (occurrence: None)
  Receive Date: 20061205
  Receipt Date: 20061121
  Transmission Date: 20070319
  Serious: Yes (Hospitalization, Other)
  Sender: FDA-Public Use
  Company Number: 2006088641

PATIENT
  Sex: Male
  Weight: 64.4108 kg

DRUGS (4)
  1. NEURONTIN [Suspect]
     Indication: NEURALGIA
  2. PLAVIX [Concomitant]
  3. ASPIRIN [Concomitant]
  4. LAMISIL [Concomitant]

REACTIONS (4)
  - DEPRESSED MOOD [None]
  - HALLUCINATION, AUDITORY [None]
  - SUICIDAL BEHAVIOUR [None]
  - SUICIDE ATTEMPT [None]
